FAERS Safety Report 17013118 (Version 1)
Quarter: 2019Q4

REPORT INFORMATION
  Report Type: Spontaneous
  Country: US (occurrence: US)
  Receive Date: 20191002
  Receipt Date: 20191002
  Transmission Date: 20200122
  Serious: Yes (Hospitalization)
  Sender: FDA-Public Use
  Company Number: None

PATIENT
  Age: 68 Year
  Sex: Female

DRUGS (12)
  1. EZETIMIBE. [Concomitant]
     Active Substance: EZETIMIBE
  2. FENOFIBRATE. [Concomitant]
     Active Substance: FENOFIBRATE
  3. PRAMIXPEXOLE [Concomitant]
  4. METOPROLOL. [Concomitant]
     Active Substance: METOPROLOL
  5. SPIRONACTOLONE [Concomitant]
  6. DULOXETINE. [Concomitant]
     Active Substance: DULOXETINE
  7. LATANOPROST. [Concomitant]
     Active Substance: LATANOPROST
  8. PANTOPRAZOLE [Concomitant]
     Active Substance: PANTOPRAZOLE
  9. ELIQUIS [Concomitant]
     Active Substance: APIXABAN
  10. FUROSEMIDE. [Concomitant]
     Active Substance: FUROSEMIDE
  11. XELJANZ [Suspect]
     Active Substance: TOFACITINIB CITRATE
     Indication: RHEUMATOID ARTHRITIS
     Route: 048
     Dates: start: 20160519
  12. PREDNISONE. [Concomitant]
     Active Substance: PREDNISONE

REACTIONS (1)
  - Surgery [None]

NARRATIVE: CASE EVENT DATE: 20190901
